FAERS Safety Report 17354032 (Version 1)
Quarter: 2020Q1

REPORT INFORMATION
  Report Type: Spontaneous
  Country: US (occurrence: US)
  Receive Date: 20200130
  Receipt Date: 20200130
  Transmission Date: 20200409
  Serious: No
  Sender: FDA-Public Use
  Company Number: None

PATIENT
  Age: 63 Year
  Sex: Male
  Weight: 81 kg

DRUGS (4)
  1. PIROXICAM. [Concomitant]
     Active Substance: PIROXICAM
  2. LOSARTAN POTASSIUM50 MG TAB ALEM [Suspect]
     Active Substance: LOSARTAN POTASSIUM
     Indication: HYPERTENSION
     Dosage: ?          QUANTITY:1 TABLET(S);?
     Route: 048
     Dates: start: 20191028, end: 20191219
  3. MULTIVITAMIN FOR MEN [Concomitant]
  4. FISH OIL [Concomitant]
     Active Substance: FISH OIL

REACTIONS (3)
  - Musculoskeletal stiffness [None]
  - Muscle tightness [None]
  - Gait disturbance [None]

NARRATIVE: CASE EVENT DATE: 20191219
